FAERS Safety Report 8004602-5 (Version None)
Quarter: 2011Q4

REPORT INFORMATION
  Report Type: 
  Country: None (occurrence: None)
  Receive Date: 20111220
  Receipt Date: 20111213
  Transmission Date: 20120403
  Serious: Yes (Hospitalization, Other)
  Sender: FDA-Public Use
  Company Number: DKLU1075148

PATIENT
  Age: 14 Year
  Sex: Male

DRUGS (4)
  1. ELSPAR [Suspect]
     Indication: ACUTE LYMPHOCYTIC LEUKAEMIA
     Dosage: INDUCTION THERAPY
  2. VINCRISTINE [Suspect]
     Indication: ACUTE LYMPHOCYTIC LEUKAEMIA
     Dosage: INDUCTION THERAPY
  3. PREDNISOLONE [Suspect]
     Indication: ACUTE LYMPHOCYTIC LEUKAEMIA
     Dosage: INDUCTION THERAPY
  4. IDARUBICIN HCL [Suspect]
     Indication: ACUTE LYMPHOCYTIC LEUKAEMIA
     Dosage: INDUCTION THERAPY

REACTIONS (6)
  - MYOCARDITIS [None]
  - MULTI-ORGAN FAILURE [None]
  - HEPATITIS FULMINANT [None]
  - DISSEMINATED INTRAVASCULAR COAGULATION [None]
  - ECCHYMOSIS [None]
  - HERPES ZOSTER DISSEMINATED [None]
